FAERS Safety Report 11337337 (Version 1)
Quarter: 2015Q3

REPORT INFORMATION
  Report Type: Spontaneous
  Country: US (occurrence: US)
  Receive Date: 20150803
  Receipt Date: 20150803
  Transmission Date: 20151125
  Serious: Yes (Other)
  Sender: FDA-Public Use
  Company Number: US-ELI_LILLY_AND_COMPANY-US200905002487

PATIENT
  Age: 79 Year
  Sex: Female

DRUGS (7)
  1. GLIPIZIDE ER [Concomitant]
     Active Substance: GLIPIZIDE
     Dosage: 5 MG, DAILY (1/D)
  2. JANUVIA [Concomitant]
     Active Substance: SITAGLIPTIN PHOSPHATE
     Dosage: 50 MG, DAILY (1/D)
  3. LISINOPRIL. [Concomitant]
     Active Substance: LISINOPRIL
     Dosage: 20 MG, DAILY (1/D)
  4. ZYPREXA [Suspect]
     Active Substance: OLANZAPINE
     Indication: SCHIZOPHRENIA
     Dosage: 15 MG, EACH EVENING
     Dates: start: 2001
  5. METFORMIN [Concomitant]
     Active Substance: METFORMIN HYDROCHLORIDE
     Dosage: 500 MG, 3/D
  6. TRILAFON [Concomitant]
     Active Substance: PERPHENAZINE
     Dosage: 16 MG, EACH EVENING
  7. LABETALOL [Concomitant]
     Active Substance: LABETALOL\LABETALOL HYDROCHLORIDE
     Dosage: 200 MG, 2/D

REACTIONS (4)
  - Hypertension [Not Recovered/Not Resolved]
  - Catecholamines urine [Unknown]
  - Epinephrine increased [Unknown]
  - Tremor [Not Recovered/Not Resolved]

NARRATIVE: CASE EVENT DATE: 20090319
